FAERS Safety Report 15464478 (Version 4)
Quarter: 2018Q4

REPORT INFORMATION
  Report Type: Spontaneous
  Country: CZ (occurrence: CZ)
  Receive Date: 20181004
  Receipt Date: 20181030
  Transmission Date: 20190204
  Serious: Yes (Other)
  Sender: FDA-Public Use
  Company Number: CZ-MYLANLABS-2018M1035019

PATIENT
  Age: 43 Year
  Sex: Female

DRUGS (6)
  1. PEMETREXED. [Suspect]
     Active Substance: PEMETREXED
     Indication: LUNG ADENOCARCINOMA
  2. PEMETREXED. [Suspect]
     Active Substance: PEMETREXED
     Indication: METASTASES TO PLEURA
     Dosage: 6 CYCLES
     Route: 065
  3. ERLOTINIB [Concomitant]
     Active Substance: ERLOTINIB
     Indication: PRODUCT USED FOR UNKNOWN INDICATION
     Dosage: 100 MG, QD
     Route: 065
  4. NAVELBINE [Suspect]
     Active Substance: VINORELBINE TARTRATE
     Indication: LUNG ADENOCARCINOMA STAGE III
     Dosage: UNK UNK, CYCLE
     Route: 065
     Dates: start: 201204, end: 201207
  5. CISPLATIN. [Suspect]
     Active Substance: CISPLATIN
     Indication: LUNG ADENOCARCINOMA STAGE III
     Dosage: 6 CYCLES
     Route: 042
  6. PEMETREXED. [Suspect]
     Active Substance: PEMETREXED
     Indication: METASTASES TO HEART

REACTIONS (6)
  - Haematotoxicity [Unknown]
  - Stomatitis [Unknown]
  - Neutropenia [Unknown]
  - Anaemia [Unknown]
  - Radiation oesophagitis [Unknown]
  - Disease progression [Unknown]

NARRATIVE: CASE EVENT DATE: 2012
